FAERS Safety Report 8301508-9 (Version None)
Quarter: 2012Q2

REPORT INFORMATION
  Report Type: 
  Country: None (occurrence: None)
  Receive Date: 20120420
  Receipt Date: 20120418
  Transmission Date: 20120825
  Serious: Yes (Hospitalization)
  Sender: FDA-Public Use
  Company Number: PHHY2011ES111999

PATIENT
  Age: 75 Year
  Sex: Male
  Weight: 72 kg

DRUGS (2)
  1. FLUOROURACIL [Suspect]
     Indication: OESOPHAGEAL CARCINOMA
     Dosage: 840 MG, QW; THREE TIMES (ON DAY 1, 7 AND 15) IN CYCLES OF 21 DAYS
     Route: 042
     Dates: start: 20110407, end: 20110602
  2. EPIRUBICIN [Suspect]
     Indication: OESOPHAGEAL CARCINOMA
     Route: 042
     Dates: start: 20110407, end: 20110602

REACTIONS (3)
  - HEPATOTOXICITY [None]
  - MUCOSAL INFLAMMATION [None]
  - NEUROTOXICITY [None]
